FAERS Safety Report 15741760 (Version 1)
Quarter: 2018Q4

REPORT INFORMATION
  Report Type: Spontaneous
  Country: US (occurrence: US)
  Receive Date: 20181219
  Receipt Date: 20181219
  Transmission Date: 20190205
  Serious: Yes (Other)
  Sender: FDA-Public Use
  Company Number: US-IMPAX LABORATORIES, LLC-2018-IPXL-04154

PATIENT
  Sex: Female

DRUGS (2)
  1. RYTARY [Suspect]
     Active Substance: CARBIDOPA\LEVODOPA
     Indication: PARKINSON^S DISEASE
     Dosage: 1 DOSAGE FORM, DAILY
     Route: 065
     Dates: start: 201811, end: 201811
  2. RYTARY [Suspect]
     Active Substance: CARBIDOPA\LEVODOPA
     Dosage: 2 DOSAGE FORM, DAILY
     Route: 065
     Dates: start: 201811, end: 20181130

REACTIONS (5)
  - Peripheral swelling [Unknown]
  - Fall [Unknown]
  - Malaise [Unknown]
  - Dizziness [Unknown]
  - Wrist fracture [Not Recovered/Not Resolved]
